FAERS Safety Report 14720974 (Version 1)
Quarter: 2018Q2

REPORT INFORMATION
  Report Type: Spontaneous
  Country: CN (occurrence: CN)
  Receive Date: 20180405
  Receipt Date: 20180405
  Transmission Date: 20180711
  Serious: Yes (Other)
  Sender: FDA-Public Use
  Company Number: CN-ASTRAZENECA-2018SE43076

PATIENT
  Sex: Male
  Weight: 67 kg

DRUGS (7)
  1. SODIUM CHLORIDE. [Concomitant]
     Active Substance: SODIUM CHLORIDE
     Indication: PRODUCT USED FOR UNKNOWN INDICATION
     Route: 041
     Dates: start: 20180206, end: 20180211
  2. AZLOCILLIN SODIUM. [Suspect]
     Active Substance: AZLOCILLIN SODIUM
     Indication: PROPHYLAXIS
     Route: 041
     Dates: start: 20180205, end: 20180208
  3. GLUCOSE AND SODIUM CHLORIDE POTASSIUM CHLORIDE [Concomitant]
     Indication: FLUID IMBALANCE
     Route: 041
     Dates: start: 20180206, end: 20180210
  4. OMEPRAZOLE SODIUM [Suspect]
     Active Substance: OMEPRAZOLE SODIUM
     Indication: PROPHYLAXIS
     Route: 041
     Dates: start: 20180128, end: 20180205
  5. SODIUM CHLORIDE. [Concomitant]
     Active Substance: SODIUM CHLORIDE
     Indication: PRODUCT USED FOR UNKNOWN INDICATION
     Route: 041
     Dates: start: 20180205, end: 20180208
  6. SODIUM CHLORIDE. [Concomitant]
     Active Substance: SODIUM CHLORIDE
     Indication: PRODUCT USED FOR UNKNOWN INDICATION
     Route: 041
     Dates: start: 20180128, end: 20180205
  7. ESOMEPRAZOLE SODIUM. [Suspect]
     Active Substance: ESOMEPRAZOLE SODIUM
     Indication: PROPHYLAXIS
     Route: 041
     Dates: start: 20180206, end: 20180211

REACTIONS (1)
  - Thrombocytopenic purpura [Recovering/Resolving]
